FAERS Safety Report 24916888 (Version 3)
Quarter: 2025Q1

REPORT INFORMATION
  Report Type: Spontaneous
  Country: US (occurrence: US)
  Receive Date: 20250203
  Receipt Date: 20250310
  Transmission Date: 20250408
  Serious: No
  Sender: PFIZER
  Company Number: US-PFIZER INC-202500020070

PATIENT
  Age: 13 Year
  Sex: Female
  Weight: 46.72 kg

DRUGS (3)
  1. GENOTROPIN [Suspect]
     Active Substance: SOMATROPIN
     Indication: Growth hormone deficiency
     Dosage: 2 MG, ALTERNATE DAY (ALTERNATING 2 MG + 2.2 MG, DAILY)
  2. GENOTROPIN [Suspect]
     Active Substance: SOMATROPIN
     Dosage: 2.2 MG, ALTERNATE DAY (ALTERNATING 2 MG + 2.2 MG, DAILY)
  3. GENOTROPIN [Suspect]
     Active Substance: SOMATROPIN
     Dosage: 3 MG, 1X/DAY

REACTIONS (3)
  - Injection site pain [Unknown]
  - Device difficult to use [Unknown]
  - Device mechanical issue [Unknown]

NARRATIVE: CASE EVENT DATE: 20250101
